FAERS Safety Report 14558119 (Version 1)
Quarter: 2018Q1

REPORT INFORMATION
  Report Type: Spontaneous
  Country: US (occurrence: US)
  Receive Date: 20180221
  Receipt Date: 20180221
  Transmission Date: 20180509
  Serious: No
  Sender: FDA-Public Use
  Company Number: US-PERRIGO-17US000843

PATIENT
  Sex: Female

DRUGS (1)
  1. LOPERAMIDE HYDROCHLORIDE. [Suspect]
     Active Substance: LOPERAMIDE HYDROCHLORIDE
     Indication: DIARRHOEA
     Dosage: UNK, UNK
     Route: 048
     Dates: start: 20170117, end: 20170117

REACTIONS (2)
  - Off label use [Recovered/Resolved]
  - Pre-existing disease [Not Recovered/Not Resolved]

NARRATIVE: CASE EVENT DATE: 20170117
